FAERS Safety Report 15344032 (Version 2)
Quarter: 2018Q3

REPORT INFORMATION
  Report Type: Report from Study
  Country: US (occurrence: US)
  Receive Date: 20180903
  Receipt Date: 20180911
  Transmission Date: 20181010
  Serious: Yes (Hospitalization, Other)
  Sender: FDA-Public Use
  Company Number: PHEH2018US035507

PATIENT
  Sex: Female

DRUGS (1)
  1. COSENTYX [Suspect]
     Active Substance: SECUKINUMAB
     Indication: PSORIASIS
     Dosage: 150 MG, QMO
     Route: 058

REACTIONS (16)
  - Pruritus [Unknown]
  - Erythema [Unknown]
  - Drug ineffective [Unknown]
  - Diabetes mellitus [Unknown]
  - Renal mass [Unknown]
  - Skin papilloma [Unknown]
  - Bronchitis [Unknown]
  - Skin exfoliation [Unknown]
  - Renal pain [Unknown]
  - Furuncle [Unknown]
  - Animal bite [Unknown]
  - Haematochezia [Unknown]
  - Fatigue [Unknown]
  - Nephrolithiasis [Unknown]
  - Hypotension [Unknown]
  - Psoriasis [Unknown]
